FAERS Safety Report 8874132 (Version 2)
Quarter: 2013Q4

REPORT INFORMATION
  Report Type: Spontaneous
  Country: US (occurrence: US)
  Receive Date: 20121031
  Receipt Date: 20131018
  Transmission Date: 20140711
  Serious: Yes (Hospitalization, Other)
  Sender: FDA-Public Use
  Company Number: US-PFIZER INC-2012270114

PATIENT
  Age: 56 Year
  Sex: Male

DRUGS (19)
  1. ATENOLOL [Suspect]
     Indication: HYPERTENSION
     Dosage: 50 MG, DAILY
     Route: 048
     Dates: start: 201210
  2. NEXIUM [Suspect]
     Indication: GASTROOESOPHAGEAL REFLUX DISEASE
     Dosage: 40 MG, DAILY
     Route: 048
     Dates: start: 201205, end: 201209
  3. NEXIUM [Suspect]
     Dosage: 40 MG, DAILY
     Route: 048
     Dates: start: 201209
  4. SEROQUEL [Suspect]
     Indication: ALCOHOL USE
     Dosage: 25 MG,MORNING, 50 MG AT NIGNT
     Route: 048
     Dates: start: 201204
  5. PRILOSEC [Suspect]
     Indication: GASTROOESOPHAGEAL REFLUX DISEASE
     Dosage: 20 MG, 2X/DAY
     Route: 048
     Dates: start: 2010, end: 201205
  6. LISINOPRIL [Suspect]
     Indication: HYPERTENSION
     Dosage: 20 MG, DAILY
     Route: 048
     Dates: start: 201204, end: 201209
  7. LISINOPRIL [Suspect]
     Dosage: 20 MG, DAILY
     Route: 048
     Dates: start: 201209
  8. CRESTOR [Suspect]
     Dosage: UNK
     Route: 048
  9. THIAMINE [Concomitant]
     Indication: SUPPLEMENTATION THERAPY
     Dosage: 100 MG, QAM
     Route: 065
     Dates: start: 201210
  10. OXYCONTIN [Concomitant]
     Indication: PAIN
     Dosage: 5 MG/ 325 MG, AS NEEDED
     Route: 065
     Dates: start: 201210
  11. ALBUTEROL [Concomitant]
     Indication: DYSPNOEA
     Dosage: 3 MG, 2 PUFFS QID
     Route: 045
     Dates: start: 201204
  12. AMLODIPINE [Concomitant]
     Indication: HYPERTENSION
     Dosage: 5 MG, DAILY
     Route: 050
     Dates: start: 201210
  13. ATORVASTATIN [Concomitant]
     Dosage: 80 MG, DAILY
     Route: 050
     Dates: start: 201210
  14. CLOPIDOGREL [Concomitant]
     Indication: ANTICOAGULANT THERAPY
     Dosage: 75 MG, HS
     Route: 050
     Dates: start: 201210
  15. FOLIC ACID [Concomitant]
     Indication: ALCOHOL ABUSE
     Dosage: 1 MG, DAILY
     Route: 048
     Dates: start: 201204, end: 201209
  16. FOLIC ACID [Concomitant]
     Dosage: 1 MG, DAILY
     Route: 050
     Dates: start: 201209
  17. METOCLOPRAMIDE [Concomitant]
     Indication: ENTERAL NUTRITION
     Dosage: 10 MG, 3X/DAY
     Route: 050
     Dates: start: 201210, end: 20121015
  18. METOCLOPRAMIDE [Concomitant]
     Dosage: 10 MG, QID
     Route: 050
     Dates: start: 20121015
  19. PROMOD [Concomitant]

REACTIONS (12)
  - Cerebrovascular accident [Recovered/Resolved]
  - Coronary artery occlusion [Recovered/Resolved]
  - Pneumonia [Unknown]
  - Dementia [Unknown]
  - Blood pressure abnormal [Unknown]
  - Dysphagia [Unknown]
  - Alcohol withdrawal syndrome [Unknown]
  - Malaise [Unknown]
  - Dehydration [Unknown]
  - Drug ineffective [Unknown]
  - Hallucination [Unknown]
  - Intentional drug misuse [Unknown]
